FAERS Safety Report 22810656 (Version 2)
Quarter: 2023Q4

REPORT INFORMATION
  Report Type: Spontaneous
  Country: BR (occurrence: BR)
  Receive Date: 20230810
  Receipt Date: 20231003
  Transmission Date: 20240109
  Serious: Yes (Other)
  Sender: FDA-Public Use
  Company Number: BR-PFIZER INC-PV202300136276

PATIENT
  Age: 39 Year
  Sex: Male

DRUGS (1)
  1. GENOTROPIN [Suspect]
     Active Substance: SOMATROPIN
     Dosage: UNK
     Dates: start: 20210804

REACTIONS (5)
  - Limb operation [Unknown]
  - Application site discolouration [Unknown]
  - Paraesthesia [Unknown]
  - Extravasation blood [Unknown]
  - Erythema [Unknown]

NARRATIVE: CASE EVENT DATE: 20220101
